FAERS Safety Report 25900412 (Version 1)
Quarter: 2025Q4

REPORT INFORMATION
  Report Type: Spontaneous
  Country: US (occurrence: None)
  Receive Date: 20251008
  Receipt Date: 20251008
  Transmission Date: 20260117
  Serious: Yes (Life-Threatening)
  Sender: FDA-CTU
  Company Number: None

PATIENT
  Age: 61 Year
  Sex: Male

DRUGS (1)
  1. HUMIRA [Suspect]
     Active Substance: ADALIMUMAB
     Dosage: OTHER QUANTITY : IUNSURE - OPTUM NEVER DISPENSED;?OTHER FREQUENCY : UNSURE - OPTUM NEVER DISPE~;?

REACTIONS (3)
  - Staphylococcal infection [None]
  - Sepsis [None]
  - Immunosuppression [None]
